FAERS Safety Report 9446157 (Version 4)
Quarter: 2013Q4

REPORT INFORMATION
  Report Type: Spontaneous
  Country: IT (occurrence: IT)
  Receive Date: 20130807
  Receipt Date: 20131114
  Transmission Date: 20140711
  Serious: Yes (Disabling, Other)
  Sender: FDA-Public Use
  Company Number: IT-PFIZER INC-2013225923

PATIENT
  Age: 8 Week
  Sex: Male

DRUGS (1)
  1. REVATIO [Suspect]
     Indication: PULMONARY HYPERTENSION
     Dosage: 8 MG, 1X/DAY
     Route: 048
     Dates: start: 20130604, end: 20130723

REACTIONS (8)
  - Off label use [Unknown]
  - Retinal detachment [Recovering/Resolving]
  - Retinal haemorrhage [Recovering/Resolving]
  - Retinopathy [Recovering/Resolving]
  - Exudative retinopathy [Recovering/Resolving]
  - Maculopathy [Recovering/Resolving]
  - Ocular vascular disorder [Recovering/Resolving]
  - Optic atrophy [Recovering/Resolving]
